FAERS Safety Report 24678575 (Version 4)
Quarter: 2024Q4

REPORT INFORMATION
  Report Type: Spontaneous
  Country: US (occurrence: US)
  Receive Date: 20241129
  Receipt Date: 20241204
  Transmission Date: 20250115
  Serious: Yes (Other)
  Sender: ROCHE
  Company Number: US-ROCHE-10000141003

PATIENT
  Age: 69 Year
  Sex: Male

DRUGS (1)
  1. TNKASE [Suspect]
     Active Substance: TENECTEPLASE
     Indication: Cerebrovascular accident
     Route: 065

REACTIONS (4)
  - Hypersensitivity [Recovered/Resolved]
  - Off label use [Unknown]
  - Angioedema [Recovered/Resolved]
  - Anaphylactic reaction [Recovered/Resolved]
